FAERS Safety Report 8517002-6 (Version None)
Quarter: 2012Q3

REPORT INFORMATION
  Report Type: 
  Country: None (occurrence: None)
  Receive Date: 20120718
  Receipt Date: 20120709
  Transmission Date: 20120928
  Serious: Yes (Hospitalization)
  Sender: FDA-Public Use
  Company Number: JP-NOVOPROD-302146

PATIENT
  Age: 10 Year
  Sex: Male
  Weight: 51 kg

DRUGS (6)
  1. NORDITROPIN [Suspect]
     Indication: GROWTH HORMONE DEFICIENCY
     Dosage: 6.3 MG, QD
     Route: 058
     Dates: start: 20101006
  2. DESMOPRESSIN ACETATE [Concomitant]
     Dosage: 1.25-2.50 MCG, QD
     Route: 045
     Dates: start: 20020101
  3. NORDITROPIN [Suspect]
     Indication: BODY HEIGHT BELOW NORMAL
     Dosage: 5.6 MG, QD
     Route: 058
     Dates: start: 20061108, end: 20061108
  4. CORTRIL                            /00028601/ [Concomitant]
     Dosage: 15 - 20 MG
     Route: 048
     Dates: start: 20020101
  5. LEVOTHYROXINE SODIUM [Concomitant]
     Dosage: 60 UG, QD
     Route: 048
     Dates: start: 20020712
  6. NORDITROPIN [Suspect]
     Dosage: 7.0 MG, QW
     Route: 058
     Dates: start: 20110831

REACTIONS (1)
  - CRANIOPHARYNGIOMA [None]
